FAERS Safety Report 8159772-5 (Version None)
Quarter: 2012Q1

REPORT INFORMATION
  Report Type: 
  Country: None (occurrence: None)
  Receive Date: 20120223
  Receipt Date: 20120215
  Transmission Date: 20120608
  Serious: Yes (Other)
  Sender: FDA-Public Use
  Company Number: JP-JNJFOC-20111203649

PATIENT
  Sex: Female
  Weight: 75 kg

DRUGS (7)
  1. ANTEBATE [Concomitant]
     Indication: PSORIATIC ARTHROPATHY
     Route: 061
  2. ALLEGRA [Concomitant]
     Indication: PSORIATIC ARTHROPATHY
     Route: 048
     Dates: end: 20110622
  3. IBRUPROFEN [Suspect]
     Indication: PSORIATIC ARTHROPATHY
     Route: 048
     Dates: start: 20110512, end: 20110622
  4. STELARA [Suspect]
     Indication: PSORIASIS
     Route: 058
     Dates: start: 20110420, end: 20110420
  5. STELARA [Suspect]
     Route: 058
     Dates: start: 20110518, end: 20110518
  6. OXAROL [Concomitant]
     Indication: PSORIATIC ARTHROPATHY
     Route: 061
     Dates: start: 20110512
  7. LIDOMEX [Concomitant]
     Indication: PSORIATIC ARTHROPATHY
     Route: 061

REACTIONS (3)
  - HEPATIC FUNCTION ABNORMAL [None]
  - HEPATIC STEATOSIS [None]
  - AUTOIMMUNE HEPATITIS [None]
